FAERS Safety Report 4703525-4 (Version None)
Quarter: 2005Q2

REPORT INFORMATION
  Report Type: 
  Country: None (occurrence: None)
  Receive Date: 20050630
  Receipt Date: 20050606
  Transmission Date: 20051028
  Serious: Yes (Hospitalization)
  Sender: FDA-Public Use
  Company Number: JP-BOEHRINGER INGELHEIM PHARMACEUTICALS, INC.-2005-BP-09411NB

PATIENT
  Sex: Male

DRUGS (7)
  1. PERSANTIN [Suspect]
     Indication: ANGINA PECTORIS
     Route: 048
     Dates: start: 19981101, end: 20050509
  2. ZYLORIC [Suspect]
     Indication: HYPERURICAEMIA
     Route: 048
     Dates: start: 19990701, end: 20050509
  3. RYTHMODAN [Suspect]
     Indication: ARRHYTHMIA
     Route: 048
     Dates: start: 19960101, end: 20050509
  4. SIGMART [Suspect]
     Indication: ARRHYTHMIA
     Route: 048
     Dates: start: 19960101, end: 20050509
  5. ALTAT [Suspect]
     Indication: GASTRITIS
     Route: 048
     Dates: start: 20000901, end: 20050506
  6. LANIRAPID [Concomitant]
     Indication: ARRHYTHMIA
     Route: 048
     Dates: start: 19970601, end: 20050509
  7. FRANDOL [Concomitant]
     Indication: ANGINA PECTORIS
     Route: 048
     Dates: start: 19970601, end: 20050509

REACTIONS (1)
  - PANCYTOPENIA [None]
